FAERS Safety Report 9143683 (Version 1)
Quarter: 2013Q1

REPORT INFORMATION
  Report Type: Spontaneous
  Country: IT (occurrence: IT)
  Receive Date: 20130306
  Receipt Date: 20130306
  Transmission Date: 20140127
  Serious: Yes (Death, Other)
  Sender: FDA-Public Use
  Company Number: IT-ASTRAZENECA-2013SE14537

PATIENT
  Age: 73 Year
  Sex: Female

DRUGS (3)
  1. MEROPENEM [Suspect]
     Indication: URINARY TRACT INFECTION
     Route: 042
     Dates: start: 20130220, end: 20130223
  2. TIGECYCLINE [Suspect]
     Indication: KLEBSIELLA INFECTION
     Route: 042
     Dates: start: 20130220, end: 20130223
  3. COLISTIN [Suspect]
     Indication: SEPSIS
     Route: 042
     Dates: start: 20130220, end: 20130223

REACTIONS (3)
  - Death [Fatal]
  - Neutropenia [Unknown]
  - Natural killer cell count increased [Unknown]
